FAERS Safety Report 25319727 (Version 1)
Quarter: 2025Q2

REPORT INFORMATION
  Report Type: Spontaneous
  Country: DE (occurrence: DE)
  Receive Date: 20250515
  Receipt Date: 20250515
  Transmission Date: 20250717
  Serious: Yes (Congenital Anomaly)
  Sender: MYLAN
  Company Number: DE-EMB-M202002097-1

PATIENT
  Sex: Female
  Weight: 3.65 kg

DRUGS (64)
  1. VENLAFAXINE [Suspect]
     Active Substance: VENLAFAXINE HYDROCHLORIDE
     Indication: Depression
     Dosage: 225 MILLIGRAM, QD
     Dates: start: 201912, end: 202008
  2. VENLAFAXINE [Suspect]
     Active Substance: VENLAFAXINE HYDROCHLORIDE
     Dosage: 225 MILLIGRAM, QD
     Dates: start: 201912, end: 202008
  3. VENLAFAXINE [Suspect]
     Active Substance: VENLAFAXINE HYDROCHLORIDE
     Dosage: 225 MILLIGRAM, QD
     Route: 064
     Dates: start: 201912, end: 202008
  4. VENLAFAXINE [Suspect]
     Active Substance: VENLAFAXINE HYDROCHLORIDE
     Dosage: 225 MILLIGRAM, QD
     Route: 064
     Dates: start: 201912, end: 202008
  5. VENLAFAXINE [Suspect]
     Active Substance: VENLAFAXINE HYDROCHLORIDE
     Dosage: 225 MILLIGRAM, QD
     Dates: start: 201912, end: 202008
  6. VENLAFAXINE [Suspect]
     Active Substance: VENLAFAXINE HYDROCHLORIDE
     Dosage: 225 MILLIGRAM, QD
     Dates: start: 201912, end: 202008
  7. VENLAFAXINE [Suspect]
     Active Substance: VENLAFAXINE HYDROCHLORIDE
     Dosage: 225 MILLIGRAM, QD
     Route: 064
     Dates: start: 201912, end: 202008
  8. VENLAFAXINE [Suspect]
     Active Substance: VENLAFAXINE HYDROCHLORIDE
     Dosage: 225 MILLIGRAM, QD
     Route: 064
     Dates: start: 201912, end: 202008
  9. SEROQUEL [Suspect]
     Active Substance: QUETIAPINE FUMARATE
     Indication: Anxiety disorder
     Dosage: 375 MILLIGRAM, QD
     Dates: start: 201912, end: 202008
  10. SEROQUEL [Suspect]
     Active Substance: QUETIAPINE FUMARATE
     Dosage: 375 MILLIGRAM, QD
     Dates: start: 201912, end: 202008
  11. SEROQUEL [Suspect]
     Active Substance: QUETIAPINE FUMARATE
     Dosage: 375 MILLIGRAM, QD
     Route: 064
     Dates: start: 201912, end: 202008
  12. SEROQUEL [Suspect]
     Active Substance: QUETIAPINE FUMARATE
     Dosage: 375 MILLIGRAM, QD
     Route: 064
     Dates: start: 201912, end: 202008
  13. SEROQUEL [Suspect]
     Active Substance: QUETIAPINE FUMARATE
     Dosage: 375 MILLIGRAM, QD
     Dates: start: 201912, end: 202008
  14. SEROQUEL [Suspect]
     Active Substance: QUETIAPINE FUMARATE
     Dosage: 375 MILLIGRAM, QD
     Dates: start: 201912, end: 202008
  15. SEROQUEL [Suspect]
     Active Substance: QUETIAPINE FUMARATE
     Dosage: 375 MILLIGRAM, QD
     Route: 064
     Dates: start: 201912, end: 202008
  16. SEROQUEL [Suspect]
     Active Substance: QUETIAPINE FUMARATE
     Dosage: 375 MILLIGRAM, QD
     Route: 064
     Dates: start: 201912, end: 202008
  17. INFLUENZA VIRUS VACCINE [Concomitant]
     Active Substance: INFLUENZA VIRUS VACCINE
     Indication: Immunisation
     Dates: start: 201904, end: 201904
  18. INFLUENZA VIRUS VACCINE [Concomitant]
     Active Substance: INFLUENZA VIRUS VACCINE
     Dates: start: 201904, end: 201904
  19. INFLUENZA VIRUS VACCINE [Concomitant]
     Active Substance: INFLUENZA VIRUS VACCINE
     Route: 064
     Dates: start: 201904, end: 201904
  20. INFLUENZA VIRUS VACCINE [Concomitant]
     Active Substance: INFLUENZA VIRUS VACCINE
     Route: 064
     Dates: start: 201904, end: 201904
  21. INFLUENZA VIRUS VACCINE [Concomitant]
     Active Substance: INFLUENZA VIRUS VACCINE
     Dates: start: 201904, end: 201904
  22. INFLUENZA VIRUS VACCINE [Concomitant]
     Active Substance: INFLUENZA VIRUS VACCINE
     Dates: start: 201904, end: 201904
  23. INFLUENZA VIRUS VACCINE [Concomitant]
     Active Substance: INFLUENZA VIRUS VACCINE
     Route: 064
     Dates: start: 201904, end: 201904
  24. INFLUENZA VIRUS VACCINE [Concomitant]
     Active Substance: INFLUENZA VIRUS VACCINE
     Route: 064
     Dates: start: 201904, end: 201904
  25. LEVOTHYROXINE SODIUM [Concomitant]
     Active Substance: LEVOTHYROXINE SODIUM
     Indication: Hypothyroidism
     Dosage: 88 MICROGRAM, QD
     Dates: start: 201912, end: 202008
  26. LEVOTHYROXINE SODIUM [Concomitant]
     Active Substance: LEVOTHYROXINE SODIUM
     Dosage: 88 MICROGRAM, QD
     Dates: start: 201912, end: 202008
  27. LEVOTHYROXINE SODIUM [Concomitant]
     Active Substance: LEVOTHYROXINE SODIUM
     Dosage: 88 MICROGRAM, QD
     Route: 064
     Dates: start: 201912, end: 202008
  28. LEVOTHYROXINE SODIUM [Concomitant]
     Active Substance: LEVOTHYROXINE SODIUM
     Dosage: 88 MICROGRAM, QD
     Route: 064
     Dates: start: 201912, end: 202008
  29. LEVOTHYROXINE SODIUM [Concomitant]
     Active Substance: LEVOTHYROXINE SODIUM
     Dosage: 88 MICROGRAM, QD
     Dates: start: 201912, end: 202008
  30. LEVOTHYROXINE SODIUM [Concomitant]
     Active Substance: LEVOTHYROXINE SODIUM
     Dosage: 88 MICROGRAM, QD
     Dates: start: 201912, end: 202008
  31. LEVOTHYROXINE SODIUM [Concomitant]
     Active Substance: LEVOTHYROXINE SODIUM
     Dosage: 88 MICROGRAM, QD
     Route: 064
     Dates: start: 201912, end: 202008
  32. LEVOTHYROXINE SODIUM [Concomitant]
     Active Substance: LEVOTHYROXINE SODIUM
     Dosage: 88 MICROGRAM, QD
     Route: 064
     Dates: start: 201912, end: 202008
  33. POLYETHYLENE GLYCOLS [Concomitant]
     Active Substance: POLYETHYLENE GLYCOLS
     Indication: Constipation
  34. POLYETHYLENE GLYCOLS [Concomitant]
     Active Substance: POLYETHYLENE GLYCOLS
  35. POLYETHYLENE GLYCOLS [Concomitant]
     Active Substance: POLYETHYLENE GLYCOLS
     Route: 064
  36. POLYETHYLENE GLYCOLS [Concomitant]
     Active Substance: POLYETHYLENE GLYCOLS
     Route: 064
  37. POLYETHYLENE GLYCOLS [Concomitant]
     Active Substance: POLYETHYLENE GLYCOLS
  38. POLYETHYLENE GLYCOLS [Concomitant]
     Active Substance: POLYETHYLENE GLYCOLS
  39. POLYETHYLENE GLYCOLS [Concomitant]
     Active Substance: POLYETHYLENE GLYCOLS
     Route: 064
  40. POLYETHYLENE GLYCOLS [Concomitant]
     Active Substance: POLYETHYLENE GLYCOLS
     Route: 064
  41. METHYLDOPA [Concomitant]
     Active Substance: METHYLDOPA
     Indication: Gestational hypertension
     Dosage: 125 MILLIGRAM, QD
     Dates: start: 202007, end: 202008
  42. METHYLDOPA [Concomitant]
     Active Substance: METHYLDOPA
     Dosage: 125 MILLIGRAM, QD
     Dates: start: 202007, end: 202008
  43. METHYLDOPA [Concomitant]
     Active Substance: METHYLDOPA
     Dosage: 125 MILLIGRAM, QD
     Route: 064
     Dates: start: 202007, end: 202008
  44. METHYLDOPA [Concomitant]
     Active Substance: METHYLDOPA
     Dosage: 125 MILLIGRAM, QD
     Route: 064
     Dates: start: 202007, end: 202008
  45. METHYLDOPA [Concomitant]
     Active Substance: METHYLDOPA
     Dosage: 125 MILLIGRAM, QD
     Dates: start: 202007, end: 202008
  46. METHYLDOPA [Concomitant]
     Active Substance: METHYLDOPA
     Dosage: 125 MILLIGRAM, QD
     Dates: start: 202007, end: 202008
  47. METHYLDOPA [Concomitant]
     Active Substance: METHYLDOPA
     Dosage: 125 MILLIGRAM, QD
     Route: 064
     Dates: start: 202007, end: 202008
  48. METHYLDOPA [Concomitant]
     Active Substance: METHYLDOPA
     Dosage: 125 MILLIGRAM, QD
     Route: 064
     Dates: start: 202007, end: 202008
  49. LIDOCAINE [Concomitant]
     Active Substance: LIDOCAINE
     Indication: Haemorrhoids
  50. LIDOCAINE [Concomitant]
     Active Substance: LIDOCAINE
  51. LIDOCAINE [Concomitant]
     Active Substance: LIDOCAINE
     Route: 064
  52. LIDOCAINE [Concomitant]
     Active Substance: LIDOCAINE
     Route: 064
  53. LIDOCAINE [Concomitant]
     Active Substance: LIDOCAINE
  54. LIDOCAINE [Concomitant]
     Active Substance: LIDOCAINE
  55. LIDOCAINE [Concomitant]
     Active Substance: LIDOCAINE
     Route: 064
  56. LIDOCAINE [Concomitant]
     Active Substance: LIDOCAINE
     Route: 064
  57. XYLOMETAZOLINE [Concomitant]
     Active Substance: XYLOMETAZOLINE
     Indication: Nasopharyngitis
     Dates: start: 202002, end: 202003
  58. XYLOMETAZOLINE [Concomitant]
     Active Substance: XYLOMETAZOLINE
     Dates: start: 202002, end: 202003
  59. XYLOMETAZOLINE [Concomitant]
     Active Substance: XYLOMETAZOLINE
     Route: 064
     Dates: start: 202002, end: 202003
  60. XYLOMETAZOLINE [Concomitant]
     Active Substance: XYLOMETAZOLINE
     Route: 064
     Dates: start: 202002, end: 202003
  61. XYLOMETAZOLINE [Concomitant]
     Active Substance: XYLOMETAZOLINE
     Dates: start: 202002, end: 202003
  62. XYLOMETAZOLINE [Concomitant]
     Active Substance: XYLOMETAZOLINE
     Dates: start: 202002, end: 202003
  63. XYLOMETAZOLINE [Concomitant]
     Active Substance: XYLOMETAZOLINE
     Route: 064
     Dates: start: 202002, end: 202003
  64. XYLOMETAZOLINE [Concomitant]
     Active Substance: XYLOMETAZOLINE
     Route: 064
     Dates: start: 202002, end: 202003

REACTIONS (3)
  - Haemangioma congenital [Unknown]
  - Atrial septal defect [Not Recovered/Not Resolved]
  - Foetal exposure during pregnancy [Recovered/Resolved]
